FAERS Safety Report 17162073 (Version 3)
Quarter: 2020Q1

REPORT INFORMATION
  Report Type: Spontaneous
  Country: US (occurrence: US)
  Receive Date: 20191217
  Receipt Date: 20200117
  Transmission Date: 20200409
  Serious: No
  Sender: FDA-Public Use
  Company Number: US-AMGEN INC.-USASP2019207768

PATIENT
  Age: 28 Year
  Sex: Female
  Weight: 78.01 kg

DRUGS (1)
  1. AIMOVIG [Suspect]
     Active Substance: ERENUMAB-AOOE
     Indication: MIGRAINE PROPHYLAXIS
     Dosage: 70 MILLIGRAM, QMO
     Route: 065
     Dates: start: 20191010, end: 20191110

REACTIONS (2)
  - Nausea [Recovered/Resolved]
  - Feeling abnormal [Recovered/Resolved]

NARRATIVE: CASE EVENT DATE: 20191111
